FAERS Safety Report 12227393 (Version 2)
Quarter: 2016Q3

REPORT INFORMATION
  Report Type: Report from Study
  Country: IL (occurrence: IL)
  Receive Date: 20160331
  Receipt Date: 20160818
  Transmission Date: 20161109
  Serious: Yes (Hospitalization)
  Sender: FDA-Public Use
  Company Number: IL-ABBVIE-16P-082-1595441-00

PATIENT
  Sex: Female
  Weight: 82 kg

DRUGS (10)
  1. EVITOL [Concomitant]
     Indication: PRODUCT USED FOR UNKNOWN INDICATION
  2. EXVIERA [Suspect]
     Active Substance: DASABUVIR
     Indication: CHRONIC HEPATITIS C
     Dosage: DASABUVIR 250MG
     Route: 048
     Dates: start: 20160316, end: 20160321
  3. RIBAVIRIN. [Suspect]
     Active Substance: RIBAVIRIN
     Indication: CHRONIC HEPATITIS C
     Dosage: 6 PILLS TOTAL PER DAY (3 PILLS)
     Route: 048
     Dates: start: 20160316, end: 20160321
  4. OXOPURIN [Concomitant]
     Indication: PRODUCT USED FOR UNKNOWN INDICATION
  5. DISOTHIAZIDE [Concomitant]
     Indication: PRODUCT USED FOR UNKNOWN INDICATION
  6. NORMITEN [Concomitant]
     Active Substance: ATENOLOL
     Indication: PRODUCT USED FOR UNKNOWN INDICATION
  7. VIEKIRAX [Suspect]
     Active Substance: OMBITASVIR\PARITAPREVIR\RITONAVIR
     Indication: CHRONIC HEPATITIS C
     Dosage: PARITAPREVIR 75MG/50MG, OMBITASVIR 12.5MG
     Route: 048
     Dates: start: 20160316, end: 20160321
  8. DEPALEPT [Concomitant]
     Active Substance: VALPROIC ACID
     Indication: PRODUCT USED FOR UNKNOWN INDICATION
  9. TRIREMIN [Concomitant]
     Indication: PRODUCT USED FOR UNKNOWN INDICATION
  10. COMTAN [Concomitant]
     Active Substance: ENTACAPONE
     Indication: SEIZURE

REACTIONS (1)
  - Peritonitis [Unknown]

NARRATIVE: CASE EVENT DATE: 201603
